FAERS Safety Report 5262541-7 (Version None)
Quarter: 2007Q1

REPORT INFORMATION
  Report Type: 
  Country: None (occurrence: None)
  Receive Date: 20070312
  Receipt Date: 20070228
  Transmission Date: 20070707
  Serious: Yes (Hospitalization)
  Sender: FDA-Public Use
  Company Number: 2006UW07422

PATIENT
  Sex: Male
  Weight: 154.5 kg

DRUGS (4)
  1. SEROQUEL [Suspect]
     Indication: BIPOLAR DISORDER
     Route: 048
     Dates: start: 20001130, end: 20020515
  2. SEROQUEL [Suspect]
     Indication: DEPRESSION
     Route: 048
     Dates: start: 20001130, end: 20020515
  3. RISPERDAL [Suspect]
  4. ZYPREXA [Suspect]

REACTIONS (6)
  - DIABETES MELLITUS [None]
  - DIABETIC COMA [None]
  - DIABETIC KETOACIDOSIS [None]
  - NEUROLEPTIC MALIGNANT SYNDROME [None]
  - NEUROPATHY [None]
  - PANCREATITIS [None]
